FAERS Safety Report 7123639-1 (Version None)
Quarter: 2010Q4

REPORT INFORMATION
  Report Type: 
  Country: None (occurrence: None)
  Receive Date: 20101125
  Receipt Date: 20101116
  Transmission Date: 20110411
  Serious: Yes (Hospitalization)
  Sender: FDA-Public Use
  Company Number: US-AMGEN-USASP2010005459

PATIENT

DRUGS (1)
  1. ENBREL [Suspect]
     Indication: PSORIASIS
     Dates: start: 19970101

REACTIONS (9)
  - BRONCHITIS [None]
  - H1N1 INFLUENZA [None]
  - INJECTION SITE PAIN [None]
  - LUNG NEOPLASM [None]
  - PNEUMONIA [None]
  - PROCEDURAL COMPLICATION [None]
  - RESPIRATORY DISORDER [None]
  - TRACHEAL NEOPLASM [None]
  - TRAUMATIC LUNG INJURY [None]
